FAERS Safety Report 7424297-9 (Version None)
Quarter: 2011Q2

REPORT INFORMATION
  Report Type: 
  Country: None (occurrence: None)
  Receive Date: 20110407
  Receipt Date: 20110323
  Transmission Date: 20111010
  Serious: Yes (Hospitalization, Other)
  Sender: FDA-Public Use
  Company Number: US-BIOTEST-T 46/11

PATIENT
  Age: 54 Year
  Weight: 56.7 kg

DRUGS (6)
  1. PROGRAF [Concomitant]
  2. NORVASC [Concomitant]
  3. LASIX [Concomitant]
  4. PREDNISONE [Concomitant]
  5. ARANESP [Concomitant]
  6. NABI-HB [Suspect]
     Indication: LIVER TRANSPLANT
     Dosage: 10,000 IU, INTRAVENOUS
     Route: 042
     Dates: start: 20090601, end: 20101228

REACTIONS (2)
  - RENAL FAILURE [None]
  - DIALYSIS [None]
